FAERS Safety Report 25519369 (Version 1)
Quarter: 2025Q3

REPORT INFORMATION
  Report Type: Report from Study
  Country: US (occurrence: US)
  Receive Date: 20250704
  Receipt Date: 20250704
  Transmission Date: 20251021
  Serious: Yes (Hospitalization)
  Sender: BOEHRINGER INGELHEIM
  Company Number: US-BoehringerIngelheim-2024-BI-067074

PATIENT
  Age: 78 Year
  Sex: Female

DRUGS (4)
  1. OFEV [Suspect]
     Active Substance: NINTEDANIB
     Indication: Idiopathic pulmonary fibrosis
     Dates: start: 202411, end: 20241211
  2. OFEV [Suspect]
     Active Substance: NINTEDANIB
     Indication: Pulmonary arterial hypertension
  3. OFEV [Suspect]
     Active Substance: NINTEDANIB
     Indication: Chronic respiratory failure
  4. OFEV [Suspect]
     Active Substance: NINTEDANIB
     Indication: Hypoxia

REACTIONS (9)
  - Gastrointestinal haemorrhage [Unknown]
  - Swelling face [Not Recovered/Not Resolved]
  - Hepatic enzyme increased [Not Recovered/Not Resolved]
  - Nausea [Unknown]
  - Diarrhoea [Unknown]
  - Abdominal pain upper [Unknown]
  - Vomiting [Unknown]
  - Eye swelling [Not Recovered/Not Resolved]
  - Intentional product use issue [Unknown]
